FAERS Safety Report 9402349 (Version 3)
Quarter: 2013Q3

REPORT INFORMATION
  Report Type: Spontaneous
  Country: BR (occurrence: BR)
  Receive Date: 20130716
  Receipt Date: 20130829
  Transmission Date: 20140515
  Serious: Yes (Death, Other)
  Sender: FDA-Public Use
  Company Number: BR-PFIZER INC-2013204944

PATIENT
  Sex: Female

DRUGS (1)
  1. FRONTAL [Suspect]
     Indication: SLEEP DISORDER
     Dosage: 0.5 MG, ^SOMETIMES^
     Dates: start: 20120626

REACTIONS (3)
  - Procedural complication [Fatal]
  - Gastrointestinal disorder [Unknown]
  - Off label use [Unknown]
